FAERS Safety Report 17952376 (Version 4)
Quarter: 2021Q2

REPORT INFORMATION
  Report Type: Spontaneous
  Country: US (occurrence: US)
  Receive Date: 20200626
  Receipt Date: 20210511
  Transmission Date: 20210717
  Serious: Yes (Hospitalization, Other)
  Sender: FDA-Public Use
  Company Number: US-PFIZER INC-2020246935

PATIENT
  Age: 69 Year
  Sex: Female

DRUGS (1)
  1. IBRANCE [Suspect]
     Active Substance: PALBOCICLIB
     Indication: BREAST CANCER FEMALE
     Dosage: 100 MG, CYCLIC (DAILY FOR 21 DAYS ON,7 DAYS OFF ON A 28 DAY CYCLE)
     Dates: start: 20200204

REACTIONS (5)
  - Fatigue [Not Recovered/Not Resolved]
  - Colon cancer recurrent [Unknown]
  - Kidney infection [Unknown]
  - Second primary malignancy [Unknown]
  - Asthenia [Not Recovered/Not Resolved]
